FAERS Safety Report 11372929 (Version 1)
Quarter: 2015Q3

REPORT INFORMATION
  Report Type: Spontaneous
  Country: US (occurrence: US)
  Receive Date: 20150811
  Receipt Date: 20150811
  Transmission Date: 20151125
  Serious: No
  Sender: FDA-Public Use
  Company Number: US-ELI_LILLY_AND_COMPANY-US201202001973

PATIENT
  Age: 23 Year
  Sex: Male
  Weight: 130.16 kg

DRUGS (5)
  1. ASPIRIN. [Concomitant]
     Active Substance: ASPIRIN
     Indication: ARTHRALGIA
     Dosage: 100 MG, BID
  2. ZOLOFT [Concomitant]
     Active Substance: SERTRALINE HYDROCHLORIDE
     Indication: DEPRESSION
     Dosage: 200 MG, BID
     Dates: start: 20110615
  3. CIALIS [Suspect]
     Active Substance: TADALAFIL
     Dosage: 70 MG, PRN
     Dates: start: 20110820
  4. VIAGRA [Concomitant]
     Active Substance: SILDENAFIL CITRATE
     Dosage: 2.5 MG, PRN
     Dates: start: 20120103
  5. MARIJUANA [Concomitant]
     Active Substance: CANNABIS SATIVA SUBSP. INDICA TOP
     Indication: ARTHRALGIA

REACTIONS (8)
  - Nipple pain [Unknown]
  - Scrotal swelling [Not Recovered/Not Resolved]
  - Overdose [Unknown]
  - Dizziness [Unknown]
  - Alopecia [Unknown]
  - Genital haemorrhage [Not Recovered/Not Resolved]
  - Skin discolouration [Unknown]
  - Testicular pain [Unknown]

NARRATIVE: CASE EVENT DATE: 20110820
